FAERS Safety Report 8135165-1 (Version None)
Quarter: 2012Q1

REPORT INFORMATION
  Report Type: 
  Country: None (occurrence: None)
  Receive Date: 20120214
  Receipt Date: 20120209
  Transmission Date: 20120608
  Serious: No
  Sender: FDA-Public Use
  Company Number: US-PFIZER INC-2012036427

PATIENT
  Sex: Female
  Weight: 63.492 kg

DRUGS (6)
  1. ELAVIL [Concomitant]
     Dosage: UNK
  2. LYRICA [Suspect]
     Indication: FIBROMYALGIA
     Dosage: ONE 75MG CAPSULE IN THE MORNING AND TWO 75MG CAPSULES IN THE EVENING
     Route: 048
     Dates: start: 20070101, end: 20070101
  3. AMBIEN [Concomitant]
     Dosage: UNK
  4. LEVOTHYROXINE [Concomitant]
     Indication: HYPOTHYROIDISM
     Dosage: UNK
  5. LYRICA [Suspect]
     Dosage: 150 MG (75MG TWO CAPSULES), 1X/DAY
     Route: 048
     Dates: start: 20070101
  6. FLEXERIL [Concomitant]
     Dosage: UNK, AS NEEDED

REACTIONS (1)
  - VITAMIN D DECREASED [None]
